FAERS Safety Report 15143989 (Version 1)
Quarter: 2018Q3

REPORT INFORMATION
  Report Type: Spontaneous
  Country: HU (occurrence: HU)
  Receive Date: 20180713
  Receipt Date: 20180713
  Transmission Date: 20181010
  Serious: Yes (Death)
  Sender: FDA-Public Use
  Company Number: HU-MALLINCKRODT-T201802904

PATIENT

DRUGS (1)
  1. UVADEX [Suspect]
     Active Substance: METHOXSALEN
     Indication: TRANSPLANT REJECTION
     Dosage: UNK
     Route: 057

REACTIONS (3)
  - Condition aggravated [Fatal]
  - Product use in unapproved indication [Unknown]
  - Heart transplant rejection [Fatal]
